FAERS Safety Report 8454265-X (Version None)
Quarter: 2012Q2

REPORT INFORMATION
  Report Type: 
  Country: None (occurrence: None)
  Receive Date: 20120620
  Receipt Date: 20120605
  Transmission Date: 20120825
  Serious: Yes (Other)
  Sender: FDA-Public Use
  Company Number: CHPA2012US012053

PATIENT
  Age: 67 Year
  Sex: Female

DRUGS (2)
  1. IBUPROFEN [Concomitant]
     Indication: HEADACHE
     Dosage: UNK, UNK
     Route: 048
  2. EXCEDRIN EXTRA STRENGTH TABLETS [Suspect]
     Indication: HEADACHE
     Dosage: 2 TO 4 DF, QD
     Route: 048
     Dates: start: 19820101

REACTIONS (6)
  - DRUG DEPENDENCE [None]
  - PYREXIA [None]
  - CHILLS [None]
  - URINARY TRACT INFECTION [None]
  - CYSTITIS [None]
  - INCORRECT DRUG ADMINISTRATION DURATION [None]
